FAERS Safety Report 25195715 (Version 1)
Quarter: 2025Q2

REPORT INFORMATION
  Report Type: Spontaneous
  Country: US (occurrence: US)
  Receive Date: 20250415
  Receipt Date: 20250415
  Transmission Date: 20250717
  Serious: No
  Sender: KYOWA
  Company Number: US-KYOWAKIRIN-2025KK006597

PATIENT

DRUGS (1)
  1. CRYSVITA [Suspect]
     Active Substance: BUROSUMAB-TWZA
     Indication: Hypophosphataemia
     Dosage: UNK, 1X/2 WEEKS (BI MONTHLY INJECTIONS)
     Route: 065

REACTIONS (2)
  - Blood phosphorus decreased [Unknown]
  - Product use in unapproved indication [Unknown]
